FAERS Safety Report 4302517-7 (Version None)
Quarter: 2004Q1

REPORT INFORMATION
  Report Type: 
  Country: None (occurrence: None)
  Receive Date: 20040220
  Receipt Date: 20040206
  Transmission Date: 20041129
  Serious: Yes (Other)
  Sender: FDA-Public Use
  Company Number: 2004007112

PATIENT
  Age: 46 Year
  Sex: Female
  Weight: 72.5755 kg

DRUGS (2)
  1. NARDIL [Suspect]
     Indication: PANIC DISORDER
     Dosage: 75 MG (BID), ORAL
     Route: 048
     Dates: start: 19810101
  2. BENZODIAZEPINE DERIVATIVES [Concomitant]

REACTIONS (1)
  - SUICIDE ATTEMPT [None]
